FAERS Safety Report 16823124 (Version 3)
Quarter: 2019Q4

REPORT INFORMATION
  Report Type: Spontaneous
  Country: DE (occurrence: DE)
  Receive Date: 20190918
  Receipt Date: 20191009
  Transmission Date: 20200122
  Serious: Yes (Hospitalization)
  Sender: FDA-Public Use
  Company Number: DE-EISAI MEDICAL RESEARCH-EC-2019-062180

PATIENT
  Age: 82 Year
  Sex: Male
  Weight: 80 kg

DRUGS (2)
  1. LENVIMA [Suspect]
     Active Substance: LENVATINIB
     Route: 048
     Dates: start: 2019, end: 201904
  2. LENVIMA [Suspect]
     Active Substance: LENVATINIB
     Indication: HEPATOCELLULAR CARCINOMA
     Route: 048
     Dates: start: 201903, end: 2019

REACTIONS (2)
  - Tumour haemorrhage [Recovering/Resolving]
  - Accidental overdose [Recovered/Resolved]

NARRATIVE: CASE EVENT DATE: 2019
